FAERS Safety Report 9817617 (Version 1)
Quarter: 2013Q4

REPORT INFORMATION
  Report Type: Spontaneous
  Country: US (occurrence: None)
  Receive Date: 20131223
  Receipt Date: 20131223
  Transmission Date: 20140711
  Serious: No
  Sender: FDA-Public Use
  Company Number: 220341

PATIENT
  Sex: Female

DRUGS (1)
  1. PICATO GEL [Suspect]
     Indication: ACTINIC KERATOSIS
     Dosage: (DAILY), DERMAL
     Dates: start: 20130127

REACTIONS (4)
  - Application site swelling [None]
  - Lymphadenopathy [None]
  - Application site erythema [None]
  - Headache [None]
